FAERS Safety Report 13478928 (Version 1)
Quarter: 2017Q2

REPORT INFORMATION
  Report Type: Spontaneous
  Country: IE (occurrence: IE)
  Receive Date: 20170425
  Receipt Date: 20170425
  Transmission Date: 20170830
  Serious: Yes (Other)
  Sender: FDA-Public Use
  Company Number: IE-TEVA-762237ISR

PATIENT
  Age: 65 Year
  Sex: Male

DRUGS (5)
  1. TENDROTIL SR [Suspect]
     Active Substance: TOLTERODINE
     Indication: INCONTINENCE
     Dosage: 4 MILLIGRAM DAILY; CAPSULE, PROLONGED RELEASE
     Route: 048
  2. LEVEMIR [Concomitant]
     Active Substance: INSULIN DETEMIR
  3. GLUCOPHAGE [Concomitant]
     Active Substance: METFORMIN HYDROCHLORIDE
  4. VICTOZA [Concomitant]
     Active Substance: LIRAGLUTIDE
  5. ASPIRIN. [Concomitant]
     Active Substance: ASPIRIN

REACTIONS (7)
  - Vision blurred [Not Recovered/Not Resolved]
  - Burning sensation [Not Recovered/Not Resolved]
  - Photophobia [Not Recovered/Not Resolved]
  - Eye pain [Not Recovered/Not Resolved]
  - Fatigue [Not Recovered/Not Resolved]
  - Dry skin [Not Recovered/Not Resolved]
  - Rash macular [None]

NARRATIVE: CASE EVENT DATE: 201703
